FAERS Safety Report 13033593 (Version 3)
Quarter: 2016Q4

REPORT INFORMATION
  Report Type: Spontaneous
  Country: US (occurrence: US)
  Receive Date: 20161216
  Receipt Date: 20161229
  Transmission Date: 20170207
  Serious: Yes (Other)
  Sender: FDA-Public Use
  Company Number: US-TEVA-719279ACC

PATIENT
  Age: 56 Year
  Sex: Male
  Weight: 86 kg

DRUGS (1)
  1. EPITOL [Suspect]
     Active Substance: CARBAMAZEPINE
     Indication: EPILEPSY
     Dates: start: 20161002

REACTIONS (3)
  - Cerebrovascular accident [Unknown]
  - Contusion [Unknown]
  - Myocardial infarction [Unknown]

NARRATIVE: CASE EVENT DATE: 20161002
